FAERS Safety Report 16675499 (Version 1)
Quarter: 2019Q3

REPORT INFORMATION
  Report Type: Spontaneous
  Country: BR (occurrence: BR)
  Receive Date: 20190806
  Receipt Date: 20190806
  Transmission Date: 20191004
  Serious: Yes (Hospitalization)
  Sender: FDA-Public Use
  Company Number: BR-B.I. PHARMACEUTICALS,INC./RIDGEFIELD-2019-MI-000760

PATIENT
  Sex: Male
  Weight: 76 kg

DRUGS (13)
  1. PANTOPRAZOL [Concomitant]
     Active Substance: PANTOPRAZOLE SODIUM
     Indication: GASTROINTESTINAL ULCER
     Dosage: PANTOPRAZOL 1 TABLET ONCE DAILY
     Dates: start: 2018
  2. SUSTRATE [Concomitant]
     Active Substance: PROPATYL NITRATE
     Indication: INFARCTION
     Dosage: SUSTRATE 1 TABLET ONCE DAILY
     Route: 048
     Dates: start: 2006
  3. DOXAZOSIN [Concomitant]
     Active Substance: DOXAZOSIN MESYLATE
     Indication: PROSTATIC DISORDER
     Dosage: DOXAZOSINA 1 CAPSULE ONCE DAILY
     Route: 048
     Dates: start: 1999
  4. PREDSIM [Concomitant]
     Active Substance: PREDNISOLONE
     Indication: DYSPNOEA
     Dosage: PREDSIM 1 TABLET EVERY 12 HOURS
     Route: 048
     Dates: start: 201804
  5. ATROVENT [Suspect]
     Active Substance: IPRATROPIUM BROMIDE
     Dosage: ATROVENT 0.25, BETWEEN 25 AND 30 DROPS
     Route: 055
     Dates: start: 201804, end: 20190728
  6. BEROTEC [Suspect]
     Active Substance: FENOTEROL HYDROBROMIDE
     Indication: PRODUCT USED FOR UNKNOWN INDICATION
     Route: 055
     Dates: start: 2006, end: 2006
  7. MYLANTA PLUS [Concomitant]
     Active Substance: ALUMINUM HYDROXIDE\DIMETHICONE\MAGNESIUM HYDROXIDE
     Indication: GASTROINTESTINAL ULCER
     Dosage: MYLANTA 2 - 4 TEASPOON 3 TIMES PER DAY
     Route: 048
     Dates: start: 2018
  8. CORUS [Concomitant]
     Active Substance: LOSARTAN POTASSIUM
     Indication: HYPERTENSION
     Dosage: CORUS 1 TABLET ONCE DAILY
     Route: 048
     Dates: start: 2018
  9. TORANTE [Concomitant]
     Indication: PRODUCTIVE COUGH
     Dosage: TORANTE 0.005ML PER DAY
     Route: 048
     Dates: start: 2005
  10. ATROVENT [Suspect]
     Active Substance: IPRATROPIUM BROMIDE
     Indication: DYSPNOEA
     Dosage: ATROVENT 0.25, BETWEEN 25 AND 30 DROPS
     Route: 055
     Dates: start: 2006, end: 2012
  11. SPIRIVA RESPIMAT [Suspect]
     Active Substance: TIOTROPIUM BROMIDE
     Indication: DYSPNOEA
     Route: 065
     Dates: start: 2009, end: 2009
  12. FUROSEMIDA [Concomitant]
     Active Substance: FUROSEMIDE
     Indication: DRUG THERAPY
     Dosage: FUROSEMIDA 1 TABLET ONCE DAILY
     Route: 048
     Dates: start: 2009
  13. AZITROMICINA [Concomitant]
     Active Substance: AZITHROMYCIN DIHYDRATE
     Indication: ANTIBIOTIC THERAPY
     Dosage: AZITROMICINA 2 CAPSULES ONCE DAILY
     Route: 048
     Dates: start: 2009

REACTIONS (7)
  - Infarction [Recovered/Resolved]
  - Heart rate increased [Recovered/Resolved]
  - Extra dose administered [Unknown]
  - Hyperhidrosis [Recovered/Resolved]
  - Dyspnoea [Recovered/Resolved]
  - Heart rate abnormal [Unknown]
  - Dyspnoea [Recovered/Resolved]

NARRATIVE: CASE EVENT DATE: 2006
